FAERS Safety Report 13612851 (Version 1)
Quarter: 2017Q2

REPORT INFORMATION
  Report Type: Spontaneous
  Country: US (occurrence: US)
  Receive Date: 20170605
  Receipt Date: 20170605
  Transmission Date: 20170830
  Serious: No
  Sender: FDA-Public Use
  Company Number: US-WARNER CHILCOTT-2016-002176

PATIENT
  Sex: Female

DRUGS (1)
  1. SARAFEM [Suspect]
     Active Substance: FLUOXETINE HYDROCHLORIDE
     Dosage: 5 MG, FIVE TIMES A WEEK
     Route: 065

REACTIONS (1)
  - Unevaluable event [Unknown]
